FAERS Safety Report 6048851-4 (Version None)
Quarter: 2009Q1

REPORT INFORMATION
  Report Type: 
  Country: None (occurrence: None)
  Receive Date: 20090123
  Receipt Date: 20090113
  Transmission Date: 20090719
  Serious: Yes (Other)
  Sender: FDA-Public Use
  Company Number: CA-JNJFOC-20080104917

PATIENT
  Sex: Male
  Weight: 71.7 kg

DRUGS (11)
  1. TRAMACET [Suspect]
     Indication: ARTHRALGIA
     Dosage: ONCE OR TWICE PER DAY
     Route: 048
  2. TACROLIMUS [Interacting]
     Route: 065
  3. TACROLIMUS [Interacting]
     Indication: RENAL TRANSPLANT
     Route: 065
  4. PREDNISONE [Concomitant]
     Indication: RENAL TRANSPLANT
     Route: 048
  5. TYLENOL (CAPLET) [Concomitant]
     Indication: PAIN
     Route: 048
  6. ATENOLOL [Concomitant]
     Indication: HYPERTENSION
     Route: 048
  7. AMLODIPINE [Concomitant]
     Indication: HYPERTENSION
     Route: 048
  8. MAGNESIUM OXIDE [Concomitant]
     Route: 065
  9. MYFORTIC [Concomitant]
     Indication: RENAL TRANSPLANT
     Route: 048
  10. OMEPRAZOLE [Concomitant]
     Indication: ULCER
     Route: 048
  11. OMEPRAZOLE [Concomitant]
     Indication: GASTROOESOPHAGEAL REFLUX DISEASE
     Route: 048

REACTIONS (3)
  - BLOOD CREATININE INCREASED [None]
  - DRUG INTERACTION [None]
  - IMMUNOSUPPRESSANT DRUG LEVEL INCREASED [None]
